FAERS Safety Report 19802691 (Version 1)
Quarter: 2021Q3

REPORT INFORMATION
  Report Type: Spontaneous
  Country: US (occurrence: US)
  Receive Date: 20210908
  Receipt Date: 20210908
  Transmission Date: 20211014
  Serious: Yes (Other)
  Sender: FDA-Public Use
  Company Number: US-FRESENIUS MEDICAL CARE RENAL THERAPIES GROUP-FMC-2108-001304

PATIENT
  Age: 45 Year
  Sex: Female
  Weight: 58 kg

DRUGS (1)
  1. DELFLEX WITH DEXTROSE 4.25% LOW MAGNESIUM LOW CALCIUM [Suspect]
     Active Substance: CALCIUM CHLORIDE\DEXTROSE\MAGNESIUM CHLORIDE\SODIUM CHLORIDE\SODIUM LACTATE
     Indication: END STAGE RENAL DISEASE
     Dosage: DELFLEX AT 1800 ML FOR 5 CYCLES WITH A LAST FILL OF 100 ML AND A DAYTIME EXCHANGE OF 2000 ML.
     Route: 033
     Dates: start: 20201120

REACTIONS (1)
  - Peritonitis bacterial [Recovering/Resolving]
